FAERS Safety Report 20082691 (Version 3)
Quarter: 2022Q4

REPORT INFORMATION
  Report Type: Spontaneous
  Country: DE (occurrence: DE)
  Receive Date: 20211117
  Receipt Date: 20221228
  Transmission Date: 20230112
  Serious: Yes (Hospitalization, Other)
  Sender: FDA-Public Use
  Company Number: DE-ADRED-07243-03

PATIENT
  Age: 87 Year
  Sex: Female
  Weight: 66 kg

DRUGS (13)
  1. APIXABAN [Suspect]
     Active Substance: APIXABAN
     Indication: Product used for unknown indication
     Dosage: 2.5 MILLIGRAM, BID (2.5 MG, 1-0-1-0)
     Route: 065
  2. METAMIZOL [Concomitant]
     Active Substance: METAMIZOLE SODIUM
     Indication: Product used for unknown indication
     Dosage: 500 MILLIGRAM, QID (500 MG, 1-1-1-1)
     Route: 065
  3. ALENDRONIC ACID [Concomitant]
     Active Substance: ALENDRONIC ACID
     Indication: Product used for unknown indication
     Dosage: 70 MILLIGRAM (70 MG, SCHEMA)
     Route: 065
  4. POLYETHYLENE GLYCOLS [Concomitant]
     Active Substance: POLYETHYLENE GLYCOLS
     Indication: Product used for unknown indication
     Dosage: UNK, QD (1-0-0-0)
     Route: 065
  5. BISOPROLOL [Concomitant]
     Active Substance: BISOPROLOL
     Indication: Product used for unknown indication
     Dosage: 5 MILLIGRAM, BID (5 MG, 1-0-1-0)
     Route: 065
  6. FENTANYL [Concomitant]
     Active Substance: FENTANYL
     Indication: Product used for unknown indication
     Dosage: 25 MICROGRAM (25 ?G, SCHEMA)
     Route: 065
  7. POTASSIUM CHLORIDE [Concomitant]
     Active Substance: POTASSIUM CHLORIDE
     Indication: Product used for unknown indication
     Dosage: UNK, UNK QD
     Route: 065
  8. SIMVASTATIN [Concomitant]
     Active Substance: SIMVASTATIN
     Indication: Product used for unknown indication
     Dosage: 20 MILLIGRAM, QD (20 MG, 0-0-1-0)
     Route: 065
  9. RAMIPRIL [Concomitant]
     Active Substance: RAMIPRIL
     Indication: Product used for unknown indication
     Dosage: 5 MILLIGRAM (5 MG, 1-0-1.5-0)
     Route: 065
  10. SPIRONOLACTONE [Concomitant]
     Active Substance: SPIRONOLACTONE
     Indication: Product used for unknown indication
     Dosage: 50 MILLIGRAM, QD (50 MG, 1-0-0-0)
     Route: 065
  11. COLECALCIFEROL;STRONTIUM RANELATE [Concomitant]
     Indication: Product used for unknown indication
     Dosage: 20000 INTERNATIONAL UNIT (20000 IU, SCHEMA)
     Route: 065
  12. XIPAMIDE [Concomitant]
     Active Substance: XIPAMIDE
     Indication: Product used for unknown indication
     Dosage: 20 MILLIGRAM, QD (20 MG, 0-1-0-0)
     Route: 065
  13. MIRTAZAPINE [Concomitant]
     Active Substance: MIRTAZAPINE
     Indication: Product used for unknown indication
     Dosage: 75 MILLIGRAM (75 MG, 0-0-0.5-0)
     Route: 065

REACTIONS (6)
  - Hyperkalaemia [Unknown]
  - General physical health deterioration [Unknown]
  - Renal impairment [Unknown]
  - Anaemia [Unknown]
  - Spontaneous haemorrhage [Unknown]
  - Bleeding varicose vein [Unknown]
